FAERS Safety Report 4971012-4 (Version None)
Quarter: 2006Q2

REPORT INFORMATION
  Report Type: 
  Country: None (occurrence: None)
  Receive Date: 20060412
  Receipt Date: 20051114
  Transmission Date: 20061013
  Serious: Yes (Life-Threatening, Hospitalization)
  Sender: FDA-Public Use
  Company Number: PHBS2005JP16721

PATIENT
  Age: 80 Year
  Sex: Female

DRUGS (5)
  1. PERDIPINE [Suspect]
     Indication: HYPERTENSION
     Dosage: 10 MG, BID
     Route: 048
     Dates: start: 20050929, end: 20050930
  2. DIOVAN [Suspect]
     Indication: HYPERTENSION
     Dosage: 20 MG/DAY
     Route: 048
     Dates: start: 20030611, end: 20050101
  3. DIOVAN [Suspect]
     Dosage: 40 MG/DAY
     Route: 048
     Dates: start: 20050101, end: 20050101
  4. DIOVAN [Suspect]
     Dosage: 60 MG/DAY
     Route: 048
     Dates: start: 20050101, end: 20050929
  5. FELODIPINE [Suspect]
     Dosage: UNK, UNK
     Route: 048
     Dates: start: 20050611, end: 20050920

REACTIONS (11)
  - ABDOMINAL PAIN [None]
  - ALANINE AMINOTRANSFERASE INCREASED [None]
  - ASPARTATE AMINOTRANSFERASE INCREASED [None]
  - BACK PAIN [None]
  - BILE DUCT OBSTRUCTION [None]
  - BILE DUCT STONE [None]
  - BLOOD ALKALINE PHOSPHATASE INCREASED [None]
  - BLOOD LACTATE DEHYDROGENASE INCREASED [None]
  - CHOLELITHIASIS [None]
  - HEADACHE [None]
  - LIVER DISORDER [None]
